FAERS Safety Report 12116594 (Version 3)
Quarter: 2016Q2

REPORT INFORMATION
  Report Type: Report from Study
  Country: CO (occurrence: CO)
  Receive Date: 20160225
  Receipt Date: 20160401
  Transmission Date: 20160815
  Serious: Yes (Death, Hospitalization)
  Sender: FDA-Public Use
  Company Number: PHHY2016CO025160

PATIENT
  Sex: Female

DRUGS (1)
  1. AFINITOR [Suspect]
     Active Substance: EVEROLIMUS
     Indication: BREAST CANCER METASTATIC
     Dosage: 10 MG, QD
     Route: 048

REACTIONS (9)
  - Muscle fatigue [Unknown]
  - Malignant neoplasm progression [Fatal]
  - Tachycardia [Unknown]
  - Back pain [Unknown]
  - Malaise [Unknown]
  - Swelling [Unknown]
  - Dyspnoea [Unknown]
  - Asphyxia [Unknown]
  - Fear [Unknown]
